FAERS Safety Report 10660708 (Version 1)
Quarter: 2014Q4

REPORT INFORMATION
  Report Type: Report from Study
  Country: DE (occurrence: DE)
  Receive Date: 20141217
  Receipt Date: 20141217
  Transmission Date: 20150529
  Serious: Yes (Life-Threatening, Hospitalization)
  Sender: FDA-Public Use
  Company Number: DE-MYLANLABS-2014M1014587

PATIENT

DRUGS (3)
  1. QUININE [Concomitant]
     Active Substance: QUININE
     Dosage: 10MG QUININE DIHYDROCHLORIDE/KG EVERY 8HOURS (8.2MG OF QUININE BASE)
     Route: 042
  2. QUININE [Concomitant]
     Active Substance: QUININE
     Indication: CEREBRAL MALARIA
     Dosage: 20MG QUININE DIHYDROCHLORIDE/KG OVER 4 HOURS (16.4MG QUININE BASE)
     Route: 042
  3. CLINDAMYCIN [Suspect]
     Active Substance: CLINDAMYCIN\CLINDAMYCIN PHOSPHATE
     Route: 048

REACTIONS (4)
  - Bullous lung disease [Recovered/Resolved]
  - Respiratory failure [Recovered/Resolved]
  - Pneumothorax [Recovered/Resolved]
  - Eosinophilic pneumonia [Recovered/Resolved]
